FAERS Safety Report 5016750-2 (Version None)
Quarter: 2006Q2

REPORT INFORMATION
  Report Type: 
  Country: None (occurrence: None)
  Receive Date: 20060526
  Receipt Date: 20060511
  Transmission Date: 20061013
  Serious: No
  Sender: FDA-Public Use
  Company Number: 34724

PATIENT
  Age: 2 Month
  Sex: Male

DRUGS (1)
  1. ISOPTO ATROPINE 1.0% [Suspect]
     Dosage: 0.1 MG ONCE IV
     Route: 042

REACTIONS (3)
  - LENS DISLOCATION [None]
  - TACHYCARDIA [None]
  - VITREOUS PROLAPSE [None]
